FAERS Safety Report 5477337-0 (Version None)
Quarter: 2007Q3

REPORT INFORMATION
  Report Type: 
  Country: None (occurrence: None)
  Receive Date: 20070905
  Receipt Date: 20061106
  Transmission Date: 20080115
  Serious: Yes (Other)
  Sender: FDA-Public Use
  Company Number: 2007019779

PATIENT

DRUGS (1)
  1. DETROL LA [Suspect]

REACTIONS (1)
  - HALLUCINATION [None]
